FAERS Safety Report 5715028-9 (Version None)
Quarter: 2008Q2

REPORT INFORMATION
  Report Type: 
  Country: None (occurrence: None)
  Receive Date: 20080423
  Receipt Date: 20080410
  Transmission Date: 20081010
  Serious: No
  Sender: FDA-Public Use
  Company Number: DE-BAXTER-2008BH001694

PATIENT
  Age: 77 Year
  Sex: Female

DRUGS (2)
  1. EXTRANEAL [Suspect]
     Indication: PERITONEAL DIALYSIS
     Dosage: DOSE UNIT:UNKNOWN
     Route: 033
  2. DIANEAL [Concomitant]

REACTIONS (2)
  - DEVICE INTERACTION [None]
  - HYPOGLYCAEMIA [None]
